FAERS Safety Report 7777537-0 (Version None)
Quarter: 2011Q3

REPORT INFORMATION
  Report Type: 
  Country: None (occurrence: None)
  Receive Date: 20110926
  Receipt Date: 20110920
  Transmission Date: 20111222
  Serious: Yes (Hospitalization, Other)
  Sender: FDA-Public Use
  Company Number: US-SANOFI-AVENTIS-2011SA061987

PATIENT
  Age: 77 Year
  Sex: Female

DRUGS (1)
  1. MULTAQ [Suspect]
     Indication: ATRIAL FIBRILLATION
     Dosage: CRUSHING TABLETS
     Route: 048
     Dates: start: 20090101

REACTIONS (3)
  - SMALL INTESTINAL OBSTRUCTION [None]
  - WRONG TECHNIQUE IN DRUG USAGE PROCESS [None]
  - ATRIAL FIBRILLATION [None]
